FAERS Safety Report 20596608 (Version 1)
Quarter: 2022Q1

REPORT INFORMATION
  Report Type: Spontaneous
  Country: CN (occurrence: CN)
  Receive Date: 20220315
  Receipt Date: 20220315
  Transmission Date: 20220424
  Serious: Yes (Hospitalization)
  Sender: FDA-Public Use
  Company Number: None

PATIENT
  Age: 55 Year
  Sex: Male
  Weight: 65 kg

DRUGS (6)
  1. OLANZAPINE [Suspect]
     Active Substance: OLANZAPINE
     Indication: Schizophrenia
     Dosage: 5MG,BID
     Route: 048
     Dates: start: 20220208, end: 20220212
  2. OLANZAPINE [Suspect]
     Active Substance: OLANZAPINE
     Dosage: DOSE INCREASED TO 7.5MG,BID
     Route: 048
     Dates: start: 20220212, end: 20220215
  3. OLANZAPINE [Suspect]
     Active Substance: OLANZAPINE
     Dosage: DOSE INCREASED TO 10MG,BID
     Route: 048
     Dates: start: 20220215, end: 20220220
  4. OLANZAPINE [Suspect]
     Active Substance: OLANZAPINE
     Dosage: DOSE DECREASED 15MG,QD
     Route: 048
     Dates: start: 20220220, end: 20220221
  5. OLANZAPINE [Suspect]
     Active Substance: OLANZAPINE
     Dosage: DOSE DECREASED 10 MG, QD
     Route: 048
     Dates: start: 20220221
  6. OLANZAPINE [Suspect]
     Active Substance: OLANZAPINE
     Dosage: DOSE DECREASED 5 MG, QN
     Route: 048
     Dates: start: 20220224, end: 20220227

REACTIONS (2)
  - Fibrin D dimer increased [Recovering/Resolving]
  - Hypertension [Unknown]

NARRATIVE: CASE EVENT DATE: 20220220
